FAERS Safety Report 10174469 (Version 1)
Quarter: 2014Q2

REPORT INFORMATION
  Report Type: Spontaneous
  Country: US (occurrence: None)
  Receive Date: 20140416
  Receipt Date: 20140416
  Transmission Date: 20141212
  Serious: Yes (Other)
  Sender: FDA-Public Use
  Company Number: 163-POMAL-13121086

PATIENT
  Age: 72 Year
  Sex: Female
  Weight: 54.16 kg

DRUGS (14)
  1. POMALYST [Suspect]
     Indication: PLASMA CELL MYELOMA
     Dosage: 3 MG, 21 IN 28 D, PO
     Route: 048
     Dates: start: 201310
  2. MORPHINE [Concomitant]
  3. AMLODIPINE (AMLODIPINE) [Concomitant]
  4. PREGABALIN (PREGABALIN) [Concomitant]
  5. GABAPENTIN (GABAPENTIN) [Concomitant]
  6. DEXAMETHASONE (DEXAMETHASONE) [Concomitant]
  7. TRAMADOL (TRAMADOL) [Concomitant]
  8. ESCITALOPRAM (ESCITALOPRAM) [Concomitant]
  9. SYNTHROID (LEVOTHYROXINE SODIUM) [Concomitant]
  10. LEVOTHYROXINE (LEVOTHYROXINE) [Concomitant]
  11. LORAZEPAM (LORAZEPAM) [Concomitant]
  12. AMITRIPTYLINE (AMITRIPTYLINE) [Concomitant]
  13. CALCIUM (CALCIUM) [Concomitant]
  14. VITAMIN D (ERGOCALCIFEROL) [Concomitant]

REACTIONS (2)
  - Renal failure [None]
  - Neuropathy peripheral [None]
